FAERS Safety Report 24712307 (Version 1)
Quarter: 2024Q4

REPORT INFORMATION
  Report Type: Spontaneous
  Country: US (occurrence: US)
  Receive Date: 20241209
  Receipt Date: 20241209
  Transmission Date: 20250114
  Serious: No
  Sender: Alora Pharma
  Company Number: US-ACELLA PHARMACEUTICALS, LLC-2023ALO00113

PATIENT
  Age: 61 Year
  Sex: Female
  Weight: 83.9 kg

DRUGS (1)
  1. DSUVIA [Suspect]
     Active Substance: SUFENTANIL
     Indication: Pain
     Dosage: 30 ?G, ONCE PREOPERATIVELY
     Route: 060
     Dates: start: 20231211, end: 20231211

REACTIONS (3)
  - Oral pain [Recovered/Resolved]
  - Oral discomfort [Recovered/Resolved]
  - Saliva discolouration [Recovered/Resolved]

NARRATIVE: CASE EVENT DATE: 20231211
